FAERS Safety Report 20360954 (Version 1)
Quarter: 2022Q1

REPORT INFORMATION
  Report Type: Spontaneous
  Country: US (occurrence: US)
  Receive Date: 20220121
  Receipt Date: 20220121
  Transmission Date: 20220423
  Serious: No
  Sender: FDA-Public Use
  Company Number: US-GLENMARK PHARMACEUTICALS-2021GMK067821

PATIENT

DRUGS (1)
  1. CLOBETASOL PROPIONATE [Suspect]
     Active Substance: CLOBETASOL PROPIONATE
     Indication: Rash
     Dosage: UNK (THE PRODUCT SHOULD BE APPLIED ONCE A DAY, HOWEVER, SHE ALWAYS WASHING HER HANDS; HENCE, SHE APP
     Route: 061

REACTIONS (3)
  - Inappropriate schedule of product administration [Unknown]
  - Application site pain [Unknown]
  - Product container issue [Unknown]
